FAERS Safety Report 7401709-8 (Version None)
Quarter: 2011Q1

REPORT INFORMATION
  Report Type: 
  Country: None (occurrence: None)
  Receive Date: 20110329
  Receipt Date: 20110322
  Transmission Date: 20110831
  Serious: Yes (Hospitalization)
  Sender: FDA-Public Use
  Company Number: UKP11000032

PATIENT
  Age: 80 Year
  Sex: Female

DRUGS (9)
  1. CANDESARTAN CILEXETIL [Concomitant]
  2. LEVOTHYROXINE SODIUM [Concomitant]
  3. SIMVASTATIN [Concomitant]
  4. ACTONEL [Suspect]
     Indication: OSTEOPOROSIS
     Dosage: 35 MG, 1/WEEK, ORAL
     Route: 048
     Dates: start: 20061102, end: 20110301
  5. METFORMIN HCL [Concomitant]
  6. NIFEDIPINE [Concomitant]
  7. BUDESONIDE [Concomitant]
  8. PARACETAMOL (PARACETAMOL) [Concomitant]
  9. TERBUTALINE SULFATE [Concomitant]

REACTIONS (3)
  - FEMUR FRACTURE [None]
  - FALL [None]
  - STRESS FRACTURE [None]
